FAERS Safety Report 25757895 (Version 2)
Quarter: 2025Q3

REPORT INFORMATION
  Report Type: Spontaneous
  Country: EU (occurrence: EU)
  Receive Date: 20250903
  Receipt Date: 20250923
  Transmission Date: 20251020
  Serious: Yes (Other)
  Sender: NOVARTIS
  Company Number: EU-002147023-NVSC2025DE137600

PATIENT
  Sex: Female

DRUGS (3)
  1. KISQALI [Suspect]
     Active Substance: RIBOCICLIB SUCCINATE
     Indication: Breast cancer
     Dosage: 400 MG, QD
     Route: 065
     Dates: start: 202505
  2. LETROZOLE [Suspect]
     Active Substance: LETROZOLE
     Indication: Breast cancer
     Route: 065
     Dates: start: 2025
  3. VITAMIN B COMPLEX [Concomitant]
     Active Substance: CYANOCOBALAMIN\DEXPANTHENOL\NIACINAMIDE\PYRIDOXINE HYDROCHLORIDE\RIBOFLAVIN 5^-PHOSPHATE SODIUM\THIA
     Indication: Neuropathy peripheral
     Route: 065

REACTIONS (3)
  - Cytopenia [Unknown]
  - Alopecia [Not Recovered/Not Resolved]
  - Arthropathy [Not Recovered/Not Resolved]

NARRATIVE: CASE EVENT DATE: 20250101
